FAERS Safety Report 6238658-7 (Version None)
Quarter: 2009Q2

REPORT INFORMATION
  Report Type: 
  Country: None (occurrence: None)
  Receive Date: 20090617
  Receipt Date: 20090617
  Transmission Date: 20091009
  Serious: Yes (Life-Threatening)
  Sender: FDA-Public Use
  Company Number: None

PATIENT
  Age: 38 Year
  Sex: Male
  Weight: 95.2554 kg

DRUGS (1)
  1. ZICAM INTENSE SINUS RELIEF INTENSE MATRIXX [Suspect]
     Indication: SINUS DISORDER
     Dosage: 2 SPRAYS 3 TIMES DAILY NASAL
     Route: 045
     Dates: start: 20080815, end: 20090601

REACTIONS (1)
  - ANOSMIA [None]
